FAERS Safety Report 25778243 (Version 1)
Quarter: 2025Q3

REPORT INFORMATION
  Report Type: Spontaneous
  Country: CA (occurrence: CA)
  Receive Date: 20250909
  Receipt Date: 20250909
  Transmission Date: 20251021
  Serious: Yes (Other)
  Sender: TEVA
  Company Number: CA-TEVA-VS-3370308

PATIENT

DRUGS (1)
  1. PANTOPRAZOLE [Suspect]
     Active Substance: PANTOPRAZOLE
     Indication: Product used for unknown indication
     Route: 065

REACTIONS (7)
  - Weight increased [Unknown]
  - Musculoskeletal discomfort [Unknown]
  - Allergic reaction to excipient [Unknown]
  - Chest pain [Unknown]
  - Abdominal distension [Unknown]
  - Palpitations [Unknown]
  - Inappropriate schedule of product administration [Unknown]
